FAERS Safety Report 9201268 (Version 2)
Quarter: 2013Q1

REPORT INFORMATION
  Report Type: Spontaneous
  Country: US (occurrence: None)
  Receive Date: 20130320
  Receipt Date: 20130329
  Transmission Date: 20140127
  Serious: Yes (Life-Threatening)
  Sender: FDA-Public Use
  Company Number: 2013035051

PATIENT
  Age: 76 Year
  Sex: Female

DRUGS (4)
  1. PRIVIGEN [Suspect]
     Indication: IMMUNODEFICIENCY COMMON VARIABLE
     Dosage: INTRAVENOUS (NOT OTHERWISE SPECIFIED)
     Route: 042
     Dates: start: 20130220, end: 20130220
  2. BENADRYL (DIPHENHYDRAMINE) [Concomitant]
  3. MOTRIN (IBUPROFEN) [Concomitant]
  4. SYMBICORT (BUDESONIDE W/FORMOTEROL FUMARATE) [Concomitant]

REACTIONS (2)
  - Pruritus generalised [None]
  - Chest discomfort [None]
